FAERS Safety Report 10868062 (Version 29)
Quarter: 2018Q1

REPORT INFORMATION
  Report Type: Report from Study
  Country: CA (occurrence: CA)
  Receive Date: 20150225
  Receipt Date: 20180227
  Transmission Date: 20180508
  Serious: Yes (Other)
  Sender: FDA-Public Use
  Company Number: PHHY2015CA019642

PATIENT
  Age: 53 Year
  Sex: Female

DRUGS (12)
  1. SANDOSTATIN LAR DEPOT [Suspect]
     Active Substance: OCTREOTIDE ACETATE
     Indication: CARCINOID SYNDROME
     Dosage: 60 MG, EVERY 3 WEEKS
     Route: 030
     Dates: start: 20150217, end: 20150608
  2. SANDOSTATIN [Suspect]
     Active Substance: OCTREOTIDE ACETATE
     Indication: CARCINOID SYNDROME
     Dosage: 200 UG, TID (FOR ONE MONTH)
     Route: 058
     Dates: start: 20150119, end: 201502
  3. SANDOSTATIN [Suspect]
     Active Substance: OCTREOTIDE ACETATE
     Indication: NEUROENDOCRINE TUMOUR
     Dosage: 1 MG, TID (FOR 4 WEEKS)
     Route: 058
     Dates: start: 2016
  4. ZOFRAN [Suspect]
     Active Substance: ONDANSETRON HYDROCHLORIDE
     Indication: VOMITING
  5. SANDOSTATIN LAR DEPOT [Suspect]
     Active Substance: OCTREOTIDE ACETATE
     Dosage: 30 MG, QW3 (EVERY 3 WEEKS)
     Route: 030
     Dates: start: 20170301, end: 20170301
  6. SANDOSTATIN LAR DEPOT [Suspect]
     Active Substance: OCTREOTIDE ACETATE
     Dosage: 40 MG, QW3 40 MG, (EVERY 3 WEEKS)
     Route: 030
     Dates: start: 20170322
  7. SANDOSTATIN LAR DEPOT [Suspect]
     Active Substance: OCTREOTIDE ACETATE
     Dosage: 40 MG, QW3 40 MG, (EVERY 3 WEEKS)
     Route: 030
     Dates: start: 20161118, end: 20170208
  8. ZOFRAN [Suspect]
     Active Substance: ONDANSETRON HYDROCHLORIDE
     Indication: NAUSEA
     Dosage: 8 MG, PRN (EVERY SIX HOURS) AS NEEDED
     Route: 048
  9. SYNTHROID [Concomitant]
     Active Substance: LEVOTHYROXINE SODIUM
     Indication: PRODUCT USED FOR UNKNOWN INDICATION
     Dosage: 100 UG, QD
     Route: 048
  10. SANDOSTATIN LAR DEPOT [Suspect]
     Active Substance: OCTREOTIDE ACETATE
     Indication: NEUROENDOCRINE TUMOUR
     Dosage: 30 MG, QW3 40 MG, (EVERY 3 WEEKS)
     Route: 030
     Dates: start: 20150702, end: 20161026
  11. MORPHINE [Concomitant]
     Active Substance: MORPHINE
     Indication: PRODUCT USED FOR UNKNOWN INDICATION
     Dosage: 10 MG, PRN
     Route: 048
  12. CLINDAMYCIN. [Concomitant]
     Active Substance: CLINDAMYCIN
     Indication: PRODUCT USED FOR UNKNOWN INDICATION
     Dosage: 300 MG, TID
     Route: 048

REACTIONS (41)
  - Chest discomfort [Unknown]
  - Restlessness [Unknown]
  - Somnolence [Unknown]
  - Furuncle [Unknown]
  - Staphylococcal infection [Unknown]
  - Diarrhoea [Not Recovered/Not Resolved]
  - Vomiting [Unknown]
  - Rash [Unknown]
  - Drug resistance [Unknown]
  - Pain [Not Recovered/Not Resolved]
  - Inappropriate schedule of drug administration [Unknown]
  - Abdominal pain lower [Unknown]
  - Influenza [Recovered/Resolved]
  - Gastrooesophageal reflux disease [Unknown]
  - Pain in extremity [Unknown]
  - Postoperative wound infection [Unknown]
  - Nephrolithiasis [Unknown]
  - Intestinal obstruction [Unknown]
  - Blood pressure systolic increased [Unknown]
  - Neck pain [Unknown]
  - Lymphadenopathy [Unknown]
  - Sclerodactylia [Unknown]
  - Malaise [Recovered/Resolved]
  - Fatigue [Unknown]
  - Musculoskeletal pain [Unknown]
  - Wound [Recovered/Resolved]
  - Second primary malignancy [Unknown]
  - Malignant melanoma [Unknown]
  - Muscular weakness [Unknown]
  - Anxiety [Unknown]
  - Peripheral swelling [Unknown]
  - Wound [Recovered/Resolved]
  - Flushing [Not Recovered/Not Resolved]
  - Needle issue [Unknown]
  - Malaise [Recovering/Resolving]
  - Nausea [Unknown]
  - Injection site bruising [Unknown]
  - Body temperature decreased [Unknown]
  - Diarrhoea [Recovered/Resolved]
  - Abdominal distension [Unknown]
  - Injection site reaction [Unknown]

NARRATIVE: CASE EVENT DATE: 2015
